FAERS Safety Report 8876492 (Version 1)
Quarter: 2012Q4

REPORT INFORMATION
  Report Type: 
  Country: US (occurrence: US)
  Receive Date: 20121023
  Receipt Date: 20121023
  Transmission Date: 20130627
  Serious: Yes (Other)
  Sender: FDA-Public Use
  Company Number: US-ASTELLAS-2010US003445

PATIENT

DRUGS (3)
  1. PROGRAF [Suspect]
     Indication: LIVER TRANSPLANT
     Dosage: UNK
     Route: 065
     Dates: end: 201205
  2. TACROLIMUS [Suspect]
     Indication: LIVER TRANSPLANT
     Dosage: UNK
     Route: 065
  3. TACROLIMUS [Suspect]
     Dosage: 4 mg, UID/QD
     Route: 065
     Dates: start: 2012

REACTIONS (5)
  - Urticaria [Recovered/Resolved]
  - Dyspnoea [Unknown]
  - Increased upper airway secretion [Unknown]
  - Immunosuppressant drug level decreased [Unknown]
  - Diarrhoea [Unknown]
